FAERS Safety Report 24557341 (Version 3)
Quarter: 2025Q2

REPORT INFORMATION
  Report Type: Report from Study
  Country: DE (occurrence: DE)
  Receive Date: 20241028
  Receipt Date: 20250401
  Transmission Date: 20250716
  Serious: Yes (Hospitalization)
  Sender: NOVARTIS
  Company Number: DE-002147023-NVSC2024DE133622

PATIENT
  Sex: Male
  Weight: 130 kg

DRUGS (10)
  1. COSENTYX [Suspect]
     Active Substance: SECUKINUMAB
     Indication: Axial spondyloarthritis
     Route: 065
     Dates: start: 20240126, end: 20240126
  2. CELECOXIB [Concomitant]
     Active Substance: CELECOXIB
     Indication: Axial spondyloarthritis
     Dosage: 100 MG, QD (AFTERNOON, 0-1-0)
     Route: 048
     Dates: start: 202306, end: 20240213
  3. CELECOXIB [Concomitant]
     Active Substance: CELECOXIB
     Indication: Arthralgia
     Dosage: 200 MG, BID
     Route: 048
     Dates: start: 20240319
  4. PANTOPRAZOLE [Concomitant]
     Active Substance: PANTOPRAZOLE
     Indication: Prophylaxis
     Dosage: 40 MG, QD (MORNING, 1-0-0)
     Route: 048
     Dates: start: 2018
  5. PREGABALIN [Concomitant]
     Active Substance: PREGABALIN
     Indication: Neuropathy peripheral
     Dosage: 100 MG, BID (MORNING AND EVENING, 1-0-1)
     Route: 048
     Dates: start: 2020
  6. ENALAPRIL [Concomitant]
     Active Substance: ENALAPRIL
     Indication: Hypertension
     Dosage: 5 MG, BID (MORNING AND EVENING, 1-0-1)
     Route: 048
     Dates: start: 2016
  7. MILNACIPRAN [Concomitant]
     Active Substance: MILNACIPRAN
     Indication: Neuropathy peripheral
     Dosage: 25 MG, BID (MORNING AND AFTERNOON, 1-0-1)
     Route: 048
     Dates: start: 2020
  8. TILIDINE [Concomitant]
     Active Substance: TILIDINE
     Indication: Spinal osteoarthritis
     Dosage: UNK, BID (50MG/4MG MORNING AND EVENING, 1-0-1)
     Route: 048
     Dates: start: 2022
  9. LERCANIDIPINE [Concomitant]
     Active Substance: LERCANIDIPINE
     Indication: Hypertension
     Dosage: 10 MG, QD (MORNING, 1-0-0)
     Route: 048
     Dates: start: 2023
  10. CEFACLOR [Concomitant]
     Active Substance: CEFACLOR
     Indication: Otitis media
     Dosage: 500 MG, TID
     Route: 048
     Dates: start: 20240107, end: 20240115

REACTIONS (2)
  - Diverticulitis [Not Recovered/Not Resolved]
  - Post procedural cellulitis [Recovered/Resolved]

NARRATIVE: CASE EVENT DATE: 20240507
